FAERS Safety Report 26167689 (Version 1)
Quarter: 2025Q4

REPORT INFORMATION
  Report Type: Spontaneous
  Country: US (occurrence: US)
  Receive Date: 20251217
  Receipt Date: 20251217
  Transmission Date: 20260117
  Serious: No
  Sender: PACIRA
  Company Number: US-ORG100016242-2024000665

PATIENT

DRUGS (2)
  1. EXPAREL [Suspect]
     Active Substance: BUPIVACAINE
     Indication: Product used for unknown indication
     Dosage: 20 CC
     Route: 065
     Dates: start: 20241113, end: 20241113
  2. ROPIVACAINE [Suspect]
     Active Substance: ROPIVACAINE
     Indication: Product used for unknown indication
     Dosage: 20 CC
     Route: 065
     Dates: start: 20241113, end: 20241113

REACTIONS (1)
  - Labelled drug-drug interaction medication error [Unknown]
